FAERS Safety Report 7127512-4 (Version None)
Quarter: 2010Q4

REPORT INFORMATION
  Report Type: 
  Country: None (occurrence: None)
  Receive Date: 20101129
  Receipt Date: 20100709
  Transmission Date: 20110411
  Serious: No
  Sender: FDA-Public Use
  Company Number: US-PFIZER INC-2010086397

PATIENT
  Sex: Male
  Weight: 81.633 kg

DRUGS (2)
  1. VIAGRA [Suspect]
     Indication: ERECTILE DYSFUNCTION
     Dosage: 100 MG, AS NEEDED
     Route: 048
     Dates: start: 20100401
  2. BETASERON [Concomitant]
     Indication: MULTIPLE SCLEROSIS
     Dosage: 1CC ALTERNATE DAY
     Route: 058

REACTIONS (1)
  - DRUG INEFFECTIVE [None]
